FAERS Safety Report 4828312-8 (Version None)
Quarter: 2005Q4

REPORT INFORMATION
  Report Type: 
  Country: None (occurrence: None)
  Receive Date: 20051115
  Receipt Date: 20051031
  Transmission Date: 20060501
  Serious: Yes (Other)
  Sender: FDA-Public Use
  Company Number: DEWYE099131OCT05

PATIENT
  Age: 51 Year
  Sex: Female

DRUGS (8)
  1. ENBREL [Suspect]
     Indication: RHEUMATOID ARTHRITIS
     Route: 058
     Dates: start: 20050601, end: 20050801
  2. HUMIRA [Suspect]
     Indication: RHEUMATOID ARTHRITIS
     Dosage: UNKNOWN
     Route: 058
     Dates: start: 20040101, end: 20050601
  3. ARAVA [Concomitant]
     Indication: RHEUMATOID ARTHRITIS
     Route: 048
     Dates: start: 20000301, end: 20050601
  4. URBASON [Concomitant]
     Route: 065
  5. ARCOXIA [Concomitant]
     Route: 065
  6. CALCIUM GLUCONATE [Concomitant]
     Route: 065
  7. THEOPHYLLINE [Concomitant]
     Route: 065
  8. UNSPECIFIED ASTHMA MEDICATION [Concomitant]
     Route: 065

REACTIONS (1)
  - MEMORY IMPAIRMENT [None]
